FAERS Safety Report 17343129 (Version 1)
Quarter: 2020Q1

REPORT INFORMATION
  Report Type: Spontaneous
  Country: US (occurrence: US)
  Receive Date: 20200129
  Receipt Date: 20200129
  Transmission Date: 20200409
  Serious: No
  Sender: FDA-Public Use
  Company Number: US-ALLERGAN-1907034US

PATIENT
  Sex: Male

DRUGS (1)
  1. BOTOX [Suspect]
     Active Substance: ONABOTULINUMTOXINA
     Indication: SKIN COSMETIC PROCEDURE
     Dosage: 55 UNITS, SINGLE
     Route: 030
     Dates: start: 20190212, end: 20190212

REACTIONS (2)
  - Therapeutic product effect incomplete [Unknown]
  - Inflammation [Recovered/Resolved]
